FAERS Safety Report 6664700-5 (Version None)
Quarter: 2010Q1

REPORT INFORMATION
  Report Type: 
  Country: None (occurrence: None)
  Receive Date: 20100330
  Receipt Date: 20100218
  Transmission Date: 20100710
  Serious: Yes (Hospitalization)
  Sender: FDA-Public Use
  Company Number: 6058108

PATIENT
  Age: 59 Year
  Sex: Female

DRUGS (7)
  1. LEVOTHYROXINE SODIUM [Suspect]
     Indication: DRUG USE FOR UNKNOWN INDICATION
     Dosage: 25 MCG (25 MCG,1 D) ORAL
     Route: 048
     Dates: end: 20100118
  2. NAVELBINE [Suspect]
     Indication: OVARIAN EPITHELIAL CANCER
     Dosage: SEE IMAGE
     Route: 042
     Dates: start: 20091124, end: 20091124
  3. NAVELBINE [Suspect]
     Indication: OVARIAN EPITHELIAL CANCER
     Dosage: SEE IMAGE
     Route: 042
     Dates: start: 20091221, end: 20091221
  4. TAHOR [Suspect]
     Indication: DRUG USE FOR UNKNOWN INDICATION
     Dosage: 1 DOSAGE FORMS (1 DOSAGE FORMS,1 D) ORAL
     Route: 048
     Dates: end: 20100118
  5. CORDARONE [Suspect]
     Indication: DRUG USE FOR UNKNOWN INDICATION
     Dosage: 1 DOSAGE FORMS (1 DOSAGE FORMS,1 D) ORAL
     Route: 048
     Dates: end: 20100118
  6. FLECAINE (200 MG, PROLONGED-RELEASE CAPSULE) (FLECAINIDE ACETATE) [Suspect]
     Indication: DRUG USE FOR UNKNOWN INDICATION
     Dosage: 200 MG (200 MG,1 D) ORAL
     Route: 048
     Dates: end: 20100118
  7. LASIX [Suspect]
     Indication: DRUG USE FOR UNKNOWN INDICATION
     Dosage: 1 DOSAGE FORMS (1 DOSAGE FORMS,1 D) ORAL
     Route: 048
     Dates: end: 20100118

REACTIONS (5)
  - AREFLEXIA [None]
  - FINE MOTOR DELAY [None]
  - MALIGNANT NEOPLASM PROGRESSION [None]
  - METASTASES TO LIVER [None]
  - MUSCULAR WEAKNESS [None]
